FAERS Safety Report 20327891 (Version 3)
Quarter: 2022Q1

REPORT INFORMATION
  Report Type: Spontaneous
  Country: CA (occurrence: CA)
  Receive Date: 20220112
  Receipt Date: 20220308
  Transmission Date: 20220423
  Serious: Yes (Hospitalization, Other)
  Sender: FDA-Public Use
  Company Number: CA-INDIVIOR US-INDV-131813-2021

PATIENT

DRUGS (7)
  1. SUBLOCADE [Suspect]
     Active Substance: BUPRENORPHINE
     Indication: Drug dependence
     Dosage: 300 MILLIGRAM, QMO
     Route: 058
     Dates: start: 20210819
  2. ACETAZOLAMIDE [Concomitant]
     Active Substance: ACETAZOLAMIDE
     Indication: Product used for unknown indication
     Dosage: UNK
     Route: 065
  3. GABAPENTIN [Concomitant]
     Active Substance: GABAPENTIN
     Indication: Product used for unknown indication
     Dosage: UNK
     Route: 065
  4. LEVOMEPROMAZINE EMBONATE [Concomitant]
     Active Substance: LEVOMEPROMAZINE EMBONATE
     Indication: Product used for unknown indication
     Dosage: 150 MILLIGRAM, QHS
     Route: 048
  5. LEVOMEPROMAZINE EMBONATE [Concomitant]
     Active Substance: LEVOMEPROMAZINE EMBONATE
     Dosage: 25 MILLIGRAM, BID
     Route: 048
  6. CLONIDINE [Concomitant]
     Active Substance: CLONIDINE
     Indication: Product used for unknown indication
     Dosage: 0.05 MILLIGRAM, BID
     Route: 048
  7. VENLAFAXINE [Concomitant]
     Active Substance: VENLAFAXINE HYDROCHLORIDE
     Indication: Product used for unknown indication
     Dosage: 150 MILLIGRAM, QD
     Route: 048

REACTIONS (3)
  - Idiopathic intracranial hypertension [Recovering/Resolving]
  - Adrenal insufficiency [Recovering/Resolving]
  - Off label use [Recovered/Resolved]

NARRATIVE: CASE EVENT DATE: 20210819
